FAERS Safety Report 4948977-X (Version None)
Quarter: 2006Q1

REPORT INFORMATION
  Report Type: 
  Country: None (occurrence: None)
  Receive Date: 20060315
  Receipt Date: 20060221
  Transmission Date: 20060701
  Serious: Yes (Other)
  Sender: FDA-Public Use
  Company Number: USA0508106687

PATIENT
  Age: 53 Year
  Sex: Female
  Weight: 75 kg

DRUGS (8)
  1. STRATTERA [Suspect]
     Indication: ATTENTION DEFICIT/HYPERACTIVITY DISORDER
     Dosage: 180 MG, DAILY (1/D)
  2. CYMBALTA [Suspect]
     Indication: DEPRESSION
     Dosage: 120 MG, DAILY (1/D)
  3. TOPAMAX [Concomitant]
  4. GEODON [Concomitant]
  5. PROVIGIL [Concomitant]
  6. RITALIN [Concomitant]
  7. EFFEXOR [Concomitant]
  8. ATIVAN [Concomitant]

REACTIONS (5)
  - INTENTIONAL SELF-INJURY [None]
  - PRESCRIBED OVERDOSE [None]
  - STRESS [None]
  - SUICIDAL IDEATION [None]
  - SUICIDE ATTEMPT [None]
